FAERS Safety Report 9697858 (Version 3)
Quarter: 2013Q4

REPORT INFORMATION
  Report Type: Spontaneous
  Country: DE (occurrence: DE)
  Receive Date: 20131120
  Receipt Date: 20131206
  Transmission Date: 20140711
  Serious: Yes (Other)
  Sender: FDA-Public Use
  Company Number: DE-PFIZER INC-2013211332

PATIENT
  Age: 72 Year
  Sex: Male

DRUGS (2)
  1. NEURONTIN [Suspect]
     Indication: TRIGEMINAL NEURALGIA
     Dosage: 400 MG, UNK
     Route: 048
     Dates: start: 200809
  2. NEURONTIN [Suspect]
     Dosage: 400 MG, 3X/DAY
     Route: 048

REACTIONS (6)
  - Off label use [Not Recovered/Not Resolved]
  - Heart rate increased [Unknown]
  - Sleep disorder [Unknown]
  - Vascular pain [Unknown]
  - Drug ineffective for unapproved indication [Unknown]
  - Depressed mood [Unknown]
